APPROVED DRUG PRODUCT: BETAGAN
Active Ingredient: LEVOBUNOLOL HYDROCHLORIDE
Strength: 0.25% **Federal Register determination that product was not discontinued or withdrawn for safety or effectiveness reasons**
Dosage Form/Route: SOLUTION/DROPS;OPHTHALMIC
Application: N019814 | Product #001
Applicant: ALLERGAN PHARMACEUTICAL
Approved: Jun 28, 1989 | RLD: Yes | RS: No | Type: DISCN